FAERS Safety Report 8048643-0 (Version None)
Quarter: 2011Q4

REPORT INFORMATION
  Report Type: 
  Country: None (occurrence: None)
  Receive Date: 20111230
  Receipt Date: 20111221
  Transmission Date: 20120403
  Serious: Yes (Death)
  Sender: FDA-Public Use
  Company Number: 2011030623

PATIENT
  Age: 50 Year
  Sex: Female

DRUGS (3)
  1. VELCADE [Concomitant]
  2. CLOZARIL [Concomitant]
  3. PRIVIGEN [Suspect]
     Indication: SELECTIVE IGG SUBCLASS DEFICIENCY
     Dosage: INTRAVENOUS (NOT OTHERWISE SPECIFIED)
     Route: 042

REACTIONS (1)
  - DEATH [None]
